FAERS Safety Report 13355255 (Version 1)
Quarter: 2017Q1

REPORT INFORMATION
  Report Type: Spontaneous
  Country: US (occurrence: US)
  Receive Date: 20170321
  Receipt Date: 20170321
  Transmission Date: 20170429
  Serious: No
  Sender: FDA-Public Use
  Company Number: US-BAUSCH-BL-2016-014417

PATIENT
  Age: 74 Year
  Sex: Female
  Weight: 49.94 kg

DRUGS (2)
  1. RETIN-A [Suspect]
     Active Substance: TRETINOIN
     Indication: SKIN WRINKLING
     Dosage: ONE APPLICATION DAILY
     Route: 061
     Dates: start: 20160602, end: 201606
  2. RETIN-A [Suspect]
     Active Substance: TRETINOIN
     Indication: ACNE
     Dosage: ONE APPLICATION EVERY OTHER DAY
     Route: 061
     Dates: start: 20160606

REACTIONS (1)
  - Dry skin [Not Recovered/Not Resolved]

NARRATIVE: CASE EVENT DATE: 201606
